FAERS Safety Report 4506872-4 (Version None)
Quarter: 2004Q4

REPORT INFORMATION
  Report Type: 
  Country: None (occurrence: None)
  Receive Date: 20041117
  Receipt Date: 20041101
  Transmission Date: 20050328
  Serious: Yes (Hospitalization, Other)
  Sender: FDA-Public Use
  Company Number: 15079

PATIENT
  Age: 76 Year
  Sex: Male
  Weight: 58.0604 kg

DRUGS (1)
  1. DAUNORUBICIN HCL [Suspect]
     Indication: ACUTE MYELOID LEUKAEMIA
     Dates: start: 20040810

REACTIONS (2)
  - DYSPHAGIA [None]
  - NEUROPATHY [None]
